FAERS Safety Report 22267465 (Version 1)
Quarter: 2023Q2

REPORT INFORMATION
  Report Type: Spontaneous
  Country: US (occurrence: US)
  Receive Date: 20230429
  Receipt Date: 20230429
  Transmission Date: 20230722
  Serious: No
  Sender: FDA-Public Use
  Company Number: US-UNITED THERAPEUTICS-UNT-2023-008220

PATIENT
  Age: 48 Year
  Sex: Male
  Weight: 82.993 kg

DRUGS (3)
  1. REMODULIN [Suspect]
     Active Substance: TREPROSTINIL
     Indication: Pulmonary arterial hypertension
     Dosage: 0.0225 ?G/KG (SELF FILL CASSETTE WITH 2.3 ML AT A RATE OF 25 MCL/HOUR), CONTINUING
     Route: 058
     Dates: start: 202303
  2. REMODULIN [Suspect]
     Active Substance: TREPROSTINIL
     Dosage: 0.02725 ?G/KG, CONTINUING
     Route: 058
  3. REMODULIN [Suspect]
     Active Substance: TREPROSTINIL
     Dosage: UNK, CONTINUING
     Route: 058
     Dates: start: 20230308

REACTIONS (2)
  - Weight decreased [Unknown]
  - Fluid retention [Unknown]

NARRATIVE: CASE EVENT DATE: 20230301
